FAERS Safety Report 23647300 (Version 2)
Quarter: 2024Q2

REPORT INFORMATION
  Report Type: Spontaneous
  Country: US (occurrence: US)
  Receive Date: 20240319
  Receipt Date: 20240401
  Transmission Date: 20240716
  Serious: Yes (Other)
  Sender: FDA-Public Use
  Company Number: US-AMGEN-USASP2024051766

PATIENT
  Age: 71 Year
  Sex: Female

DRUGS (2)
  1. REPATHA [Suspect]
     Active Substance: EVOLOCUMAB
     Indication: Blood cholesterol increased
     Dosage: UNK
     Route: 065
  2. REPATHA [Suspect]
     Active Substance: EVOLOCUMAB
     Dosage: 420 MILLIGRAM, Q4WK (EVERY 4TH SATURDAY)
     Route: 065
     Dates: start: 2023

REACTIONS (3)
  - Cardiac operation [Unknown]
  - Drug dose omission by device [Unknown]
  - Transcription medication error [Unknown]

NARRATIVE: CASE EVENT DATE: 20240309
